FAERS Safety Report 12438196 (Version 2)
Quarter: 2016Q2

REPORT INFORMATION
  Report Type: Spontaneous
  Country: TW (occurrence: TW)
  Receive Date: 20160606
  Receipt Date: 20160608
  Transmission Date: 20160815
  Serious: Yes (Hospitalization, Other)
  Sender: FDA-Public Use
  Company Number: PHHY2016TW074739

PATIENT
  Age: 56 Year
  Sex: Female
  Weight: 96.5 kg

DRUGS (5)
  1. G-CSF [Concomitant]
     Active Substance: GRANULOCYTE COLONY-STIMULATING FACTOR NOS
     Indication: PRODUCT USED FOR UNKNOWN INDICATION
     Dosage: UNK
     Route: 065
     Dates: start: 20160402
  2. LETROZOLE. [Suspect]
     Active Substance: LETROZOLE
     Dosage: 2.5 MG, QD
     Route: 048
     Dates: start: 20160309
  3. NORVASC [Concomitant]
     Active Substance: AMLODIPINE BESYLATE
     Indication: HYPERTENSION
     Dosage: 5 MG, QD
     Route: 048
     Dates: start: 20160403, end: 20160404
  4. DIOVAN [Concomitant]
     Active Substance: VALSARTAN
     Indication: HYPERTENSION
     Dosage: 80 MG, QD
     Route: 048
     Dates: start: 20160403, end: 20160404
  5. SPIROTONE [Concomitant]
     Indication: HYPERTENSION
     Dosage: 25 MG, STAT
     Route: 048
     Dates: start: 20160412, end: 20160413

REACTIONS (11)
  - Dyspnoea exertional [Recovering/Resolving]
  - Blood pressure decreased [Unknown]
  - Pulmonary hypertension [Unknown]
  - Anaemia [Unknown]
  - Asthenia [Unknown]
  - Bone pain [Unknown]
  - Urinary tract infection [Unknown]
  - Pleural effusion [Recovering/Resolving]
  - Pericardial effusion [Unknown]
  - Thrombocytopenia [Recovered/Resolved]
  - Dyspepsia [Unknown]

NARRATIVE: CASE EVENT DATE: 20160331
